FAERS Safety Report 14558342 (Version 1)
Quarter: 2018Q1

REPORT INFORMATION
  Report Type: Spontaneous
  Country: SI (occurrence: SI)
  Receive Date: 20180221
  Receipt Date: 20180221
  Transmission Date: 20180509
  Serious: Yes (Other)
  Sender: FDA-Public Use
  Company Number: SI-PFIZER INC-2018068522

PATIENT
  Sex: Male

DRUGS (2)
  1. EDEMID [Concomitant]
     Active Substance: FUROSEMIDE
     Indication: CARDIAC FAILURE
     Dosage: UNK
  2. INSPRA [Suspect]
     Active Substance: EPLERENONE
     Indication: CARDIAC FAILURE
     Dosage: 25 MG, UNK

REACTIONS (2)
  - Carcinoembryonic antigen increased [Unknown]
  - Weight decreased [Unknown]
